FAERS Safety Report 7960109-2 (Version None)
Quarter: 2011Q4

REPORT INFORMATION
  Report Type: 
  Country: None (occurrence: None)
  Receive Date: 20111206
  Receipt Date: 20111202
  Transmission Date: 20120403
  Serious: Yes (Life-Threatening, Hospitalization, Other)
  Sender: FDA-Public Use
  Company Number: US-ABBOTT-11P-163-0858353-00

PATIENT
  Sex: Male
  Weight: 89 kg

DRUGS (2)
  1. HUMIRA [Suspect]
     Route: 058
     Dates: start: 20110323, end: 20110821
  2. HUMIRA [Suspect]
     Indication: PSORIASIS
     Dosage: 80 MG STARTING DOSE
     Route: 058
     Dates: start: 20110318, end: 20110318

REACTIONS (15)
  - CHEST PAIN [None]
  - INTRACARDIAC THROMBUS [None]
  - STAPHYLOCOCCAL INFECTION [None]
  - DUODENAL ULCER HAEMORRHAGE [None]
  - ORTHOSTATIC HYPOTENSION [None]
  - NODAL RHYTHM [None]
  - ENDOCARDITIS [None]
  - MYOCARDIAL INFARCTION [None]
  - CORONARY ARTERY DISEASE [None]
  - ASTHENIA [None]
  - TACHYCARDIA [None]
  - ELECTROCARDIOGRAM ST SEGMENT ELEVATION [None]
  - PYREXIA [None]
  - ANAEMIA [None]
  - ATRIAL FIBRILLATION [None]
